FAERS Safety Report 4609779-7 (Version None)
Quarter: 2005Q1

REPORT INFORMATION
  Report Type: 
  Country: None (occurrence: None)
  Receive Date: 20050316
  Receipt Date: 20050114
  Transmission Date: 20050727
  Serious: Yes (Other)
  Sender: FDA-Public Use
  Company Number: PHEH2005US01011

PATIENT
  Age: 21 Year
  Sex: Male
  Weight: 100 kg

DRUGS (6)
  1. AMLODIPINE BESYLATE [Concomitant]
     Indication: HYPERTENSION
     Dosage: UNK, UNK
     Dates: start: 20020101
  2. CLARINEX [Concomitant]
     Indication: ASTHMA
     Dates: start: 19850101
  3. MULTI-VITAMINS [Concomitant]
     Indication: MEDICAL DIET
     Dates: start: 20030101
  4. ZELNORM [Suspect]
     Indication: IRRITABLE BOWEL SYNDROME
     Dosage: 6 MG, BID
     Route: 048
     Dates: start: 20030827, end: 20030101
  5. ZELNORM [Suspect]
     Dosage: 6 MG, BID
     Route: 048
     Dates: start: 20040714, end: 20041005
  6. ZELNORM [Suspect]
     Dosage: 6 MG, QD
     Dates: start: 20041006

REACTIONS (4)
  - BIOPSY COLON ABNORMAL [None]
  - DIARRHOEA [None]
  - INFLAMMATORY BOWEL DISEASE [None]
  - RECTAL ULCER [None]
